FAERS Safety Report 23592963 (Version 1)
Quarter: 2024Q1

REPORT INFORMATION
  Report Type: Spontaneous
  Country: CN (occurrence: CN)
  Receive Date: 20240304
  Receipt Date: 20240304
  Transmission Date: 20240409
  Serious: Yes (Other)
  Sender: FDA-Public Use
  Company Number: CN-PFIZER INC-PV202400027570

PATIENT
  Age: 54 Year
  Sex: Male

DRUGS (1)
  1. METHOTREXATE SODIUM [Suspect]
     Active Substance: METHOTREXATE SODIUM
     Indication: Lymphoma
     Dosage: 6 G, 1X/DAY
     Route: 041
     Dates: start: 20240126, end: 20240126

REACTIONS (1)
  - Neurotoxicity [Unknown]

NARRATIVE: CASE EVENT DATE: 20240129
